FAERS Safety Report 12569548 (Version 1)
Quarter: 2016Q3

REPORT INFORMATION
  Report Type: Spontaneous
  Country: US (occurrence: None)
  Receive Date: 20160718
  Receipt Date: 20160718
  Transmission Date: 20161109
  Serious: Yes (Hospitalization)
  Sender: FDA-Public Use
  Company Number: None

PATIENT
  Age: 67 Year
  Sex: Female
  Weight: 69.8 kg

DRUGS (3)
  1. METFORMIN HYDROCHLORIDE. [Suspect]
     Active Substance: METFORMIN HYDROCHLORIDE
     Dates: end: 20141117
  2. TAXOL [Suspect]
     Active Substance: PACLITAXEL
     Dates: end: 20141028
  3. CARBOPLATIN. [Suspect]
     Active Substance: CARBOPLATIN
     Dates: end: 20141028

REACTIONS (7)
  - Back pain [None]
  - Hypersensitivity [None]
  - Flushing [None]
  - Vomiting [None]
  - Nausea [None]
  - Chest discomfort [None]
  - Hypotension [None]

NARRATIVE: CASE EVENT DATE: 20141118
